FAERS Safety Report 13154538 (Version 2)
Quarter: 2017Q1

REPORT INFORMATION
  Report Type: Spontaneous
  Country: US (occurrence: US)
  Receive Date: 20170126
  Receipt Date: 20170209
  Transmission Date: 20170428
  Serious: Yes (Death)
  Sender: FDA-Public Use
  Company Number: US-INSYS THERAPEUTICS, INC-INS201701-000068

PATIENT
  Age: 71 Year
  Sex: Female

DRUGS (3)
  1. BUTRANS [Concomitant]
     Active Substance: BUPRENORPHINE
  2. KLONOPIN [Concomitant]
     Active Substance: CLONAZEPAM
  3. SUBSYS [Suspect]
     Active Substance: FENTANYL
     Indication: BREAKTHROUGH PAIN
     Route: 060

REACTIONS (1)
  - Neoplasm progression [Fatal]

NARRATIVE: CASE EVENT DATE: 20170115
